FAERS Safety Report 18560996 (Version 2)
Quarter: 2021Q3

REPORT INFORMATION
  Report Type: Spontaneous
  Country: VN (occurrence: VN)
  Receive Date: 20201130
  Receipt Date: 20210805
  Transmission Date: 20211014
  Serious: Yes (Other)
  Sender: FDA-Public Use
  Company Number: VN-INCYTE CORPORATION-2020IN011668

PATIENT

DRUGS (3)
  1. JAKAVI [Suspect]
     Active Substance: RUXOLITINIB
     Indication: PRIMARY MYELOFIBROSIS
     Dosage: 20 MG, QD (DAILY)
     Route: 065
     Dates: start: 202002
  2. JAKAVI [Suspect]
     Active Substance: RUXOLITINIB
     Dosage: UNK
     Route: 065
  3. HYDREA [Concomitant]
     Active Substance: HYDROXYUREA
     Indication: PRODUCT USED FOR UNKNOWN INDICATION
     Dosage: 500 MG, 2 PILLS/DAY
     Route: 065

REACTIONS (12)
  - Tuberculosis [Recovering/Resolving]
  - Blood count abnormal [Unknown]
  - Calcification of muscle [Unknown]
  - Haemoglobin decreased [Unknown]
  - Splenomegaly [Unknown]
  - Pulmonary fibrosis [Unknown]
  - Reticulin increased [Unknown]
  - Bone pain [Unknown]
  - Lymph node tuberculosis [Unknown]
  - White blood cell count increased [Unknown]
  - Pyrexia [Unknown]
  - Lymphadenopathy [Unknown]

NARRATIVE: CASE EVENT DATE: 202006
